FAERS Safety Report 7617613-6 (Version None)
Quarter: 2011Q3

REPORT INFORMATION
  Report Type: 
  Country: None (occurrence: None)
  Receive Date: 20110718
  Receipt Date: 20110706
  Transmission Date: 20111222
  Serious: No
  Sender: FDA-Public Use
  Company Number: US-ROXANE LABORATORIES, INC.-2011-RO-00456RO

PATIENT
  Sex: Male
  Weight: 82 kg

DRUGS (8)
  1. CORGARD [Concomitant]
     Indication: TACHYCARDIA
  2. FIORICET [Concomitant]
     Indication: HEADACHE
     Dates: start: 19900101
  3. STEROIDS [Concomitant]
  4. CORGARD [Concomitant]
     Indication: HYPERTENSION
     Dosage: 160 MG
     Dates: start: 19900101
  5. VICODIN [Concomitant]
     Indication: BACK PAIN
     Dosage: 500 MG
     Dates: start: 19900101
  6. LISINOPRIL [Concomitant]
     Indication: BLOOD PRESSURE
     Dosage: 40 MG
     Dates: start: 20010101
  7. ZESTRIL [Concomitant]
     Indication: HYPERTENSION
  8. AMLODIPINE [Suspect]
     Indication: HYPERTENSION
     Dosage: 5 MG
     Route: 048
     Dates: start: 20110131, end: 20110330

REACTIONS (19)
  - HYPERHIDROSIS [None]
  - HYPOAESTHESIA [None]
  - DRUG INEFFECTIVE [None]
  - ERYTHEMA [None]
  - BLOOD PRESSURE FLUCTUATION [None]
  - HEADACHE [None]
  - HYPERSENSITIVITY [None]
  - FLATULENCE [None]
  - TINNITUS [None]
  - WEIGHT INCREASED [None]
  - ABNORMAL DREAMS [None]
  - MUSCULAR WEAKNESS [None]
  - ANOSMIA [None]
  - COUGH [None]
  - INSOMNIA [None]
  - AGEUSIA [None]
  - GASTRIC HAEMORRHAGE [None]
  - MUSCLE SPASMS [None]
  - ABDOMINAL DISTENSION [None]
